FAERS Safety Report 15890393 (Version 2)
Quarter: 2019Q1

REPORT INFORMATION
  Report Type: Spontaneous
  Country: US (occurrence: US)
  Receive Date: 20190130
  Receipt Date: 20190206
  Transmission Date: 20190417
  Serious: Yes (Hospitalization, Other)
  Sender: FDA-Public Use
  Company Number: US-ASTRAZENECA-2018SF25570

PATIENT
  Sex: Female
  Weight: 140.2 kg

DRUGS (60)
  1. IBUPROFEN. [Concomitant]
     Active Substance: IBUPROFEN
  2. TRICOR [Concomitant]
     Active Substance: FENOFIBRATE
  3. METFORMIN [Concomitant]
     Active Substance: METFORMIN HYDROCHLORIDE
  4. AMOXICILLIN. [Concomitant]
     Active Substance: AMOXICILLIN
  5. JANUVIA [Concomitant]
     Active Substance: SITAGLIPTIN PHOSPHATE
  6. FERRLECIT [Concomitant]
     Active Substance: SODIUM FERRIC GLUCONATE COMPLEX
  7. NEOSPIRIN [Concomitant]
  8. LIPITOR [Concomitant]
     Active Substance: ATORVASTATIN CALCIUM
  9. CALCITROL [Concomitant]
     Active Substance: CALCITRIOL
  10. CLOTRIMAZOLE. [Concomitant]
     Active Substance: CLOTRIMAZOLE
  11. FERROUS GLUCONATE [Concomitant]
     Active Substance: FERROUS GLUCONATE
  12. GLIPIZIDE. [Concomitant]
     Active Substance: GLIPIZIDE
  13. ZOLOFT [Concomitant]
     Active Substance: SERTRALINE HYDROCHLORIDE
  14. NEXIUM [Suspect]
     Active Substance: ESOMEPRAZOLE MAGNESIUM
     Route: 048
  15. LEVOTHYROXINE. [Concomitant]
     Active Substance: LEVOTHYROXINE
  16. ACETAMINOPHEN. [Concomitant]
     Active Substance: ACETAMINOPHEN
  17. MUCINEX [Concomitant]
     Active Substance: GUAIFENESIN
  18. NEXIUM [Suspect]
     Active Substance: ESOMEPRAZOLE MAGNESIUM
     Route: 048
     Dates: start: 200809, end: 201410
  19. LEVOTHYROXINE. [Concomitant]
     Active Substance: LEVOTHYROXINE
  20. PROMETH [Concomitant]
     Active Substance: PROMETHAZINE HYDROCHLORIDE
  21. CHLORPHENIRAMINE. [Concomitant]
     Active Substance: CHLORPHENIRAMINE
  22. SENOKOT [Concomitant]
     Active Substance: SENNOSIDES
  23. ALBUTEROL SULFATE. [Concomitant]
     Active Substance: ALBUTEROL SULFATE
  24. CYCLOBENZAPRINE. [Concomitant]
     Active Substance: CYCLOBENZAPRINE
  25. CRESTOR [Concomitant]
     Active Substance: ROSUVASTATIN CALCIUM
  26. SIMVASTATIN. [Concomitant]
     Active Substance: SIMVASTATIN
  27. LEVEMIR [Concomitant]
     Active Substance: INSULIN DETEMIR
  28. HUMALOG [Concomitant]
     Active Substance: INSULIN LISPRO
  29. AMOXICILLIN. [Concomitant]
     Active Substance: AMOXICILLIN
  30. PRAVASTATIN. [Concomitant]
     Active Substance: PRAVASTATIN
  31. SMZ/TMP [Concomitant]
     Active Substance: SULFAMETHOXAZOLE\TRIMETHOPRIM
  32. PREDNISONE. [Concomitant]
     Active Substance: PREDNISONE
  33. HYDROXYZINE [Concomitant]
     Active Substance: HYDROXYZINE HYDROCHLORIDE
  34. ALLOPURINOL. [Concomitant]
     Active Substance: ALLOPURINOL
  35. CELEBREX [Concomitant]
     Active Substance: CELECOXIB
  36. PRAVACHOL [Concomitant]
     Active Substance: PRAVASTATIN SODIUM
  37. LORATADINE. [Concomitant]
     Active Substance: LORATADINE
  38. VANCOMYCIN [Concomitant]
     Active Substance: VANCOMYCIN
  39. ASPIRIN. [Concomitant]
     Active Substance: ASPIRIN
  40. IPRATROPIUM [Concomitant]
     Active Substance: IPRATROPIUM
  41. ZETIA [Concomitant]
     Active Substance: EZETIMIBE
  42. HYDROXYZINE [Concomitant]
     Active Substance: HYDROXYZINE HYDROCHLORIDE
  43. ALLOPURINOL. [Concomitant]
     Active Substance: ALLOPURINOL
  44. KEFLEX [Concomitant]
     Active Substance: CEPHALEXIN
  45. OXYBUTYNIN. [Concomitant]
     Active Substance: OXYBUTYNIN CHLORIDE
  46. ACETAMINOPHEN-HYDROCODONE [Concomitant]
     Active Substance: ACETAMINOPHEN\HYDROCODONE
  47. CIPROFLOXACIN. [Concomitant]
     Active Substance: CIPROFLOXACIN
  48. ALLOPURINOL. [Concomitant]
     Active Substance: ALLOPURINOL
  49. GLIPIZIDE. [Concomitant]
     Active Substance: GLIPIZIDE
  50. AZITHROMYCIN ANHYDROUS. [Concomitant]
     Active Substance: AZITHROMYCIN ANHYDROUS
  51. ADVAIR HFA [Concomitant]
     Active Substance: FLUTICASONE PROPIONATE\SALMETEROL XINAFOATE
  52. GLUCOPHAGE [Concomitant]
     Active Substance: METFORMIN HYDROCHLORIDE
  53. VIOXX [Concomitant]
     Active Substance: ROFECOXIB
  54. ALLOPURINOL. [Concomitant]
     Active Substance: ALLOPURINOL
  55. CYANOCOBALAMIN. [Concomitant]
     Active Substance: CYANOCOBALAMIN
  56. EZETIMIBE. [Concomitant]
     Active Substance: EZETIMIBE
  57. LEVOTHYROXINE. [Concomitant]
     Active Substance: LEVOTHYROXINE
  58. LOVASTATIN. [Concomitant]
     Active Substance: LOVASTATIN
  59. ATORVASTATIN [Concomitant]
     Active Substance: ATORVASTATIN
  60. GABAPENTIN. [Concomitant]
     Active Substance: GABAPENTIN

REACTIONS (4)
  - Hyperparathyroidism secondary [Unknown]
  - Renal failure [Unknown]
  - Acute kidney injury [Unknown]
  - Chronic kidney disease [Unknown]
